FAERS Safety Report 7245443-6 (Version None)
Quarter: 2011Q1

REPORT INFORMATION
  Report Type: 
  Country: None (occurrence: None)
  Receive Date: 20110126
  Receipt Date: 20110118
  Transmission Date: 20110831
  Serious: Yes (Other)
  Sender: FDA-Public Use
  Company Number: FR-GENZYME-FLUD-1000652

PATIENT
  Sex: Female

DRUGS (30)
  1. THYMOGLOBULIN [Suspect]
     Indication: TRANSPLANT
     Dosage: 166 MG, QD
     Route: 042
     Dates: start: 20101129, end: 20101201
  2. SERESTA [Concomitant]
     Indication: PRODUCT USED FOR UNKNOWN INDICATION
     Dosage: UNK
     Route: 065
  3. MYFORTIC [Concomitant]
     Indication: PRODUCT USED FOR UNKNOWN INDICATION
     Dosage: UNK
     Route: 065
     Dates: start: 20101224
  4. FUNGIZONE [Concomitant]
     Indication: PRODUCT USED FOR UNKNOWN INDICATION
     Dosage: UNK
     Route: 065
     Dates: start: 20101224
  5. CYCLOSPORINE [Suspect]
     Indication: PROPHYLAXIS
     Dosage: 130 MG, BID
     Route: 048
     Dates: start: 20101129, end: 20101201
  6. CYCLOSPORINE [Suspect]
     Dosage: 80 MG, BID
     Route: 048
     Dates: start: 20101206, end: 20101208
  7. HEPARIN [Concomitant]
     Indication: PRODUCT USED FOR UNKNOWN INDICATION
     Dosage: UNK
     Route: 065
  8. FLUDARA [Suspect]
     Indication: STEM CELL TRANSPLANT
     Dosage: 64 MG, QD
     Route: 042
     Dates: start: 20101125, end: 20101128
  9. ZELITREX [Concomitant]
     Indication: PRODUCT USED FOR UNKNOWN INDICATION
     Dosage: UNK
     Route: 065
  10. DELURSAN [Concomitant]
     Indication: PRODUCT USED FOR UNKNOWN INDICATION
     Dosage: UNK
     Route: 065
  11. NEORAL [Concomitant]
     Indication: PRODUCT USED FOR UNKNOWN INDICATION
     Dosage: UNK
     Route: 065
     Dates: start: 20101224
  12. CYCLOSPORINE [Suspect]
     Dosage: 120 MG, BID
     Route: 048
     Dates: start: 20101202, end: 20101202
  13. LOXEN [Concomitant]
     Indication: PRODUCT USED FOR UNKNOWN INDICATION
     Dosage: UNK
     Route: 065
     Dates: start: 20101024
  14. BUSULFAN [Suspect]
     Indication: STEM CELL TRANSPLANT
     Dosage: 82 MG, QID
     Route: 042
     Dates: start: 20101125, end: 20101128
  15. SOLU-MEDROL [Suspect]
     Indication: STEM CELL TRANSPLANT
     Dosage: 200 MG, QD
     Route: 042
     Dates: start: 20101129, end: 20101202
  16. CYCLOSPORINE [Suspect]
     Dosage: 100 MG, BID
     Route: 048
     Dates: start: 20101203, end: 20101205
  17. CLAMOXYL [Concomitant]
     Indication: PRODUCT USED FOR UNKNOWN INDICATION
     Dosage: UNK
     Route: 065
  18. ZOPHREN [Concomitant]
     Indication: PRODUCT USED FOR UNKNOWN INDICATION
     Dosage: UNK
     Route: 065
  19. NEXIUM [Concomitant]
     Indication: PROPHYLAXIS
     Dosage: UNK
     Route: 042
     Dates: start: 20101203
  20. PROZAC [Concomitant]
     Indication: PRODUCT USED FOR UNKNOWN INDICATION
     Dosage: UNK
     Route: 065
  21. MOPRAL [Concomitant]
     Indication: PRODUCT USED FOR UNKNOWN INDICATION
     Dosage: UNK
     Route: 065
     Dates: start: 20101224
  22. RIVOTRIL [Concomitant]
     Indication: PRODUCT USED FOR UNKNOWN INDICATION
     Dosage: UNK
     Route: 065
  23. ATENOLOL [Concomitant]
     Indication: PRODUCT USED FOR UNKNOWN INDICATION
     Dosage: UNK
     Route: 065
  24. BACTRIM [Concomitant]
     Indication: PRODUCT USED FOR UNKNOWN INDICATION
     Dosage: UNK
     Route: 065
  25. CORTANCYL [Concomitant]
     Indication: PRODUCT USED FOR UNKNOWN INDICATION
     Dosage: 10 MG, QD
     Route: 065
     Dates: start: 20101122, end: 20101124
  26. CORTANCYL [Concomitant]
     Dosage: 5 MG, QD
     Route: 065
     Dates: start: 20101125
  27. MAG 2 [Concomitant]
     Indication: PRODUCT USED FOR UNKNOWN INDICATION
     Dosage: UNK
     Route: 065
     Dates: start: 20101224
  28. CYCLOSPORINE [Suspect]
     Dosage: 70 MG, BID
     Route: 048
     Dates: start: 20101209
  29. ALLOPURINOL [Concomitant]
     Indication: PRODUCT USED FOR UNKNOWN INDICATION
     Dosage: UNK
     Route: 065
     Dates: end: 20101203
  30. TRIFLUCAN [Concomitant]
     Indication: PRODUCT USED FOR UNKNOWN INDICATION
     Dosage: UNK
     Route: 065

REACTIONS (1)
  - PANCREATITIS ACUTE [None]
